FAERS Safety Report 8783978 (Version 1)
Quarter: 2012Q4

REPORT INFORMATION
  Report Type: 
  Country: US (occurrence: None)
  Receive Date: 20120906
  Receipt Date: 20120906
  Transmission Date: 20130627
  Serious: Yes (Hospitalization)
  Sender: FDA-Public Use
  Company Number: None

PATIENT
  Sex: Male
  Weight: 80.2 kg

DRUGS (1)
  1. BUSULFAN [Suspect]
     Dates: start: 20120718, end: 20120722

REACTIONS (4)
  - Rash [None]
  - Dyspnoea [None]
  - Neutropenia [None]
  - Ill-defined disorder [None]
